FAERS Safety Report 5036270-9 (Version None)
Quarter: 2006Q2

REPORT INFORMATION
  Report Type: 
  Country: None (occurrence: None)
  Receive Date: 20060531
  Receipt Date: 20060316
  Transmission Date: 20061013
  Serious: No
  Sender: FDA-Public Use
  Company Number: PHEH2006US01214

PATIENT
  Age: 11 Year
  Sex: Female
  Weight: 33.4 kg

DRUGS (3)
  1. EXJADE [Suspect]
     Indication: BLOOD IRON INCREASED
     Dosage: SEE IMAGE
     Route: 048
     Dates: start: 20060108
  2. ASPIRIN [Concomitant]
  3. PENICILLIN-VK [Concomitant]

REACTIONS (3)
  - ABDOMINAL PAIN [None]
  - INCORRECT DOSE ADMINISTERED [None]
  - TRANSAMINASES INCREASED [None]
